FAERS Safety Report 25970750 (Version 1)
Quarter: 2025Q4

REPORT INFORMATION
  Report Type: Report from Study
  Country: US (occurrence: US)
  Receive Date: 20251028
  Receipt Date: 20251028
  Transmission Date: 20260118
  Serious: Yes (Hospitalization, Other)
  Sender: TAKEDA
  Company Number: US-TAKEDA-2024TUS032868

PATIENT
  Age: 34 Year
  Sex: Female

DRUGS (25)
  1. PONATINIB [Suspect]
     Active Substance: PONATINIB
     Indication: Acute lymphocytic leukaemia
     Dosage: 45 MILLIGRAM, QD
  2. PONATINIB [Suspect]
     Active Substance: PONATINIB
     Indication: Acute lymphocytic leukaemia (in remission)
     Dosage: 45 MILLIGRAM, QD
  3. PONATINIB [Suspect]
     Active Substance: PONATINIB
     Dosage: 15 MILLIGRAM, QD
  4. PONATINIB [Suspect]
     Active Substance: PONATINIB
     Dosage: 15 MILLIGRAM, QD
  5. PONATINIB [Suspect]
     Active Substance: PONATINIB
     Dosage: 15 MILLIGRAM, QD
  6. PONATINIB [Suspect]
     Active Substance: PONATINIB
     Dosage: 30 MILLIGRAM, QD
  7. ONDANSETRON [Concomitant]
     Active Substance: ONDANSETRON
     Dosage: UNK
  8. ATOVAQUONE [Concomitant]
     Active Substance: ATOVAQUONE
     Dosage: UNK
  9. CETIRIZINE HCL [Concomitant]
     Active Substance: CETIRIZINE HYDROCHLORIDE
     Dosage: UNK
  10. BLINCYTO [Concomitant]
     Active Substance: BLINATUMOMAB
     Dosage: UNK
  11. ACETAMINOPHEN [Concomitant]
     Active Substance: ACETAMINOPHEN
     Dosage: UNK
  12. IBUPROFEN [Concomitant]
     Active Substance: IBUPROFEN
     Dosage: UNK
  13. OMEPRAZOLE [Concomitant]
     Active Substance: OMEPRAZOLE
     Dosage: UNK
  14. ACYCLOVIR [Concomitant]
     Active Substance: ACYCLOVIR
     Dosage: UNK
  15. LIDOCAINE [Concomitant]
     Active Substance: LIDOCAINE
     Dosage: UNK
  16. AMOXICILLIN [Concomitant]
     Active Substance: AMOXICILLIN
     Dosage: UNK
  17. AUGMENTIN [Concomitant]
     Active Substance: AMOXICILLIN\CLAVULANATE POTASSIUM
     Dosage: UNK
  18. AZITHROMYCIN [Concomitant]
     Active Substance: AZITHROMYCIN
     Dosage: UNK
  19. CLAVULANIC ACID [Concomitant]
     Active Substance: CLAVULANIC ACID
     Dosage: UNK
  20. FLUCONAZOLE [Concomitant]
     Active Substance: FLUCONAZOLE
  21. PENICILLIN [Concomitant]
     Active Substance: PENICILLIN
     Dosage: UNK
  22. SULFAMETHOXAZOLE [Concomitant]
     Active Substance: SULFAMETHOXAZOLE
     Dosage: UNK
  23. TRIMETHOPRIM [Concomitant]
     Active Substance: TRIMETHOPRIM
  24. CHLORHEXIDINE DIACETATE [Concomitant]
     Active Substance: CHLORHEXIDINE DIACETATE
     Dosage: UNK
  25. NITROFURANTOIN [Concomitant]
     Active Substance: NITROFURANTOIN
     Dosage: UNK

REACTIONS (11)
  - Acute lymphocytic leukaemia recurrent [Unknown]
  - Pyrexia [Unknown]
  - Memory impairment [Unknown]
  - Product use issue [Unknown]
  - Food poisoning [Unknown]
  - Product dose omission issue [Unknown]
  - Product dose omission in error [Unknown]
  - Rash [Unknown]
  - Vomiting [Unknown]
  - Palpitations [Unknown]
  - Vision blurred [Not Recovered/Not Resolved]
